FAERS Safety Report 18445259 (Version 2)
Quarter: 2020Q4

REPORT INFORMATION
  Report Type: Spontaneous
  Country: DE (occurrence: DE)
  Receive Date: 20201030
  Receipt Date: 20201125
  Transmission Date: 20210114
  Serious: No
  Sender: FDA-Public Use
  Company Number: DE-PFIZER INC-2020410339

PATIENT
  Sex: Female

DRUGS (1)
  1. FRAGMIN P FORTE [Suspect]
     Active Substance: DALTEPARIN SODIUM
     Dosage: 5000 IU, 3X/DAY

REACTIONS (4)
  - Scratch [Unknown]
  - Intentional misuse of drug delivery system [Unknown]
  - Skin fissures [Unknown]
  - Device issue [Unknown]
